FAERS Safety Report 10743881 (Version 1)
Quarter: 2015Q1

REPORT INFORMATION
  Report Type: Spontaneous
  Country: US (occurrence: None)
  Receive Date: 20150123
  Receipt Date: 20150123
  Transmission Date: 20150721
  Serious: Yes (Other)
  Sender: FDA-Public Use
  Company Number: None

PATIENT
  Age: 65 Year
  Sex: Male

DRUGS (1)
  1. CELECOXIB. [Suspect]
     Active Substance: CELECOXIB
     Indication: ARTHRITIS
     Dosage: 1
     Route: 048
     Dates: start: 20141223, end: 20150102

REACTIONS (3)
  - Product substitution issue [None]
  - Ocular hyperaemia [None]
  - Epistaxis [None]

NARRATIVE: CASE EVENT DATE: 20150102
